FAERS Safety Report 15322862 (Version 1)
Quarter: 2018Q3

REPORT INFORMATION
  Report Type: Spontaneous
  Country: US (occurrence: US)
  Receive Date: 20180821
  Receipt Date: 20180821
  Transmission Date: 20181010
  Serious: No
  Sender: FDA-Public Use
  Company Number: None

PATIENT
  Age: 67 Year
  Sex: Female
  Weight: 102.51 kg

DRUGS (14)
  1. PEPCID [Concomitant]
     Active Substance: FAMOTIDINE
  2. LEVOTHYROXINE. [Concomitant]
     Active Substance: LEVOTHYROXINE
  3. ANASTROZOLE. [Concomitant]
     Active Substance: ANASTROZOLE
  4. ALLERTEK [Concomitant]
  5. ATORVASTIN [Concomitant]
     Active Substance: ATORVASTATIN
  6. LOSARTIN [Concomitant]
     Active Substance: LOSARTAN
  7. SITAGLIPTIN?METFORMIN [Concomitant]
     Active Substance: METFORMIN\SITAGLIPTIN
  8. RECLAST [Suspect]
     Active Substance: ZOLEDRONIC ACID
     Indication: OSTEOPOROSIS
     Route: 042
  9. ZYRTEC [Concomitant]
     Active Substance: CETIRIZINE HYDROCHLORIDE
  10. VENLAFAXINE [Concomitant]
     Active Substance: VENLAFAXINE HYDROCHLORIDE
  11. VITAMIN B12 [Concomitant]
     Active Substance: CYANOCOBALAMIN
  12. ASPIRIN. [Concomitant]
     Active Substance: ASPIRIN
  13. VITAMIN D3 [Concomitant]
     Active Substance: CHOLECALCIFEROL
  14. TRIAMCINOLONE CREAM 0.1% [Concomitant]
     Active Substance: TRIAMCINOLONE

REACTIONS (9)
  - Dysstasia [None]
  - Myalgia [None]
  - Musculoskeletal chest pain [None]
  - Dyspnoea [None]
  - Pain [None]
  - Chest pain [None]
  - Bone pain [None]
  - Decreased appetite [None]
  - Arthralgia [None]

NARRATIVE: CASE EVENT DATE: 20180720
